FAERS Safety Report 10432520 (Version 3)
Quarter: 2014Q4

REPORT INFORMATION
  Report Type: Spontaneous
  Country: US (occurrence: US)
  Receive Date: 20140905
  Receipt Date: 20141107
  Transmission Date: 20150528
  Serious: Yes (Other)
  Sender: FDA-Public Use
  Company Number: US-JNJFOC-20140900768

PATIENT
  Age: 60 Year
  Sex: Female
  Weight: 107.05 kg

DRUGS (18)
  1. CYANOCOBALAMIN. [Concomitant]
     Active Substance: CYANOCOBALAMIN
     Route: 065
     Dates: start: 20120409
  2. MAGNESIUM [Concomitant]
     Active Substance: MAGNESIUM
     Indication: BLOOD MAGNESIUM DECREASED
     Route: 065
     Dates: start: 2013
  3. ASPIRIN. [Suspect]
     Active Substance: ASPIRIN
     Indication: CARDIAC DISORDER
     Route: 048
  4. FERROUS SULFATE [Concomitant]
     Active Substance: FERROUS SULFATE\FERROUS SULFATE, DRIED
     Indication: BLOOD IRON DECREASED
     Route: 065
     Dates: start: 20140409, end: 20140508
  5. VITAMIN D [Concomitant]
     Active Substance: CHOLECALCIFEROL
     Indication: BLOOD CALCIUM DECREASED
     Route: 065
     Dates: start: 2012
  6. ACETAZOLAMIDE. [Concomitant]
     Active Substance: ACETAZOLAMIDE
     Indication: OCULAR DISCOMFORT
     Route: 048
     Dates: start: 201309
  7. DOCUSATE/SENNA [Concomitant]
     Indication: ABNORMAL FAECES
     Route: 065
     Dates: start: 20120409, end: 20140508
  8. XARELTO [Suspect]
     Active Substance: RIVAROXABAN
     Indication: THROMBOSIS PROPHYLAXIS
     Route: 048
     Dates: start: 20140409, end: 20140414
  9. CALCIUM CARBONATE / VITAMIN D [Concomitant]
     Indication: BLOOD CALCIUM DECREASED
     Route: 065
     Dates: start: 20120409
  10. XARELTO [Suspect]
     Active Substance: RIVAROXABAN
     Indication: THROMBOSIS PROPHYLAXIS
     Route: 048
     Dates: start: 20140416, end: 20140420
  11. LISINOPRIL HCTZ [Concomitant]
     Active Substance: HYDROCHLOROTHIAZIDE\LISINOPRIL
     Indication: BLOOD PRESSURE
     Dosage: 10/25MG/TABLET/10-??25MG/DAILY
     Route: 065
     Dates: start: 2012
  12. HYDROCHLOROTHIAZIDE/LISINOPRIL [Concomitant]
     Active Substance: HYDROCHLOROTHIAZIDE\LISINOPRIL
     Indication: HYPERTENSION
     Route: 065
     Dates: start: 2012
  13. VITAMINS [Concomitant]
     Active Substance: VITAMINS
     Indication: GENERAL PHYSICAL CONDITION
     Route: 048
  14. VITAMIN B6 [Concomitant]
     Active Substance: PYRIDOXINE HYDROCHLORIDE
     Indication: LIMB DISCOMFORT
     Route: 065
     Dates: start: 2013
  15. XARELTO [Suspect]
     Active Substance: RIVAROXABAN
     Indication: KNEE ARTHROPLASTY
     Route: 048
     Dates: start: 20140416, end: 20140420
  16. XARELTO [Suspect]
     Active Substance: RIVAROXABAN
     Indication: KNEE ARTHROPLASTY
     Route: 048
     Dates: start: 20140409, end: 20140414
  17. OXYCODONE HYDROCHLORIDE. [Concomitant]
     Active Substance: OXYCODONE HYDROCHLORIDE
     Indication: PROCEDURAL PAIN
     Route: 065
     Dates: start: 20140409, end: 20140429
  18. CENTRUM SILVER [Concomitant]
     Active Substance: VITAMINS
     Route: 065
     Dates: start: 20120409

REACTIONS (6)
  - Arthralgia [Not Recovered/Not Resolved]
  - Secretion discharge [Recovered/Resolved]
  - Weight decreased [Not Recovered/Not Resolved]
  - Incorrect dosage administered [Unknown]
  - Contusion [Recovering/Resolving]
  - Joint swelling [Recovering/Resolving]

NARRATIVE: CASE EVENT DATE: 201404
